FAERS Safety Report 14327523 (Version 1)
Quarter: 2017Q4

REPORT INFORMATION
  Report Type: Spontaneous
  Country: US (occurrence: US)
  Receive Date: 20171226
  Receipt Date: 20171226
  Transmission Date: 20180321
  Serious: Yes (Other)
  Sender: FDA-Public Use
  Company Number: None

PATIENT
  Age: 50 Year
  Sex: Female

DRUGS (1)
  1. LIDOCAINE. [Suspect]
     Active Substance: LIDOCAINE
     Dosage: 1 UNITS EVERY DAY TOP
     Route: 061
     Dates: start: 20170717

REACTIONS (3)
  - Wrong technique in device usage process [None]
  - Application site pain [None]
  - Product adhesion issue [None]

NARRATIVE: CASE EVENT DATE: 20170921
